FAERS Safety Report 25457636 (Version 2)
Quarter: 2025Q3

REPORT INFORMATION
  Report Type: Spontaneous
  Country: JP (occurrence: JP)
  Receive Date: 20250619
  Receipt Date: 20250917
  Transmission Date: 20251020
  Serious: Yes (Hospitalization, Other)
  Sender: BRISTOL-MYERS SQUIBB COMPANY
  Company Number: JP-ONO-2025JP010547

PATIENT

DRUGS (2)
  1. OPDIVO [Suspect]
     Active Substance: NIVOLUMAB
     Indication: Gastric cancer
  2. OXALIPLATIN [Concomitant]
     Active Substance: OXALIPLATIN
     Indication: Gastric cancer

REACTIONS (2)
  - Ketoacidosis [Unknown]
  - Type 1 diabetes mellitus [Recovering/Resolving]
